FAERS Safety Report 14614397 (Version 1)
Quarter: 2018Q1

REPORT INFORMATION
  Report Type: Spontaneous
  Country: CN (occurrence: CN)
  Receive Date: 20180308
  Receipt Date: 20180308
  Transmission Date: 20180509
  Serious: Yes (Other)
  Sender: FDA-Public Use
  Company Number: CN-NAPPMUNDI-GBR-2018-0053828

PATIENT
  Age: 77 Year
  Sex: Male
  Weight: 70 kg

DRUGS (1)
  1. OXYCONTIN [Suspect]
     Active Substance: OXYCODONE HYDROCHLORIDE
     Indication: ANALGESIC THERAPY
     Dosage: 30 MG, Q12H [TWO ADMINISTRATIONS]
     Route: 048
     Dates: start: 20171126, end: 20171126

REACTIONS (3)
  - Speech disorder [Recovering/Resolving]
  - Nervousness [Recovering/Resolving]
  - Delirium [Recovering/Resolving]
